FAERS Safety Report 10650801 (Version 1)
Quarter: 2014Q4

REPORT INFORMATION
  Report Type: Spontaneous
  Country: FR (occurrence: FR)
  Receive Date: 20141215
  Receipt Date: 20141215
  Transmission Date: 20150529
  Serious: Yes (Other)
  Sender: FDA-Public Use
  Company Number: PHHY2014FR162379

PATIENT
  Sex: Female

DRUGS (1)
  1. DEXAMETHASONE. [Suspect]
     Active Substance: DEXAMETHASONE
     Indication: ADRENOGENITAL SYNDROME
     Dosage: 20 UG/KG, QD
     Route: 065

REACTIONS (8)
  - Skin striae [Unknown]
  - Pancreatitis acute [Unknown]
  - Placental disorder [Unknown]
  - Polyhydramnios [Unknown]
  - Maternal exposure during pregnancy [Unknown]
  - Weight increased [Unknown]
  - Premature delivery [Unknown]
  - Acne [Unknown]
